FAERS Safety Report 14758302 (Version 1)
Quarter: 2018Q2

REPORT INFORMATION
  Report Type: Report from Study
  Country: NL (occurrence: NL)
  Receive Date: 20180413
  Receipt Date: 20180413
  Transmission Date: 20180711
  Serious: Yes (Other)
  Sender: FDA-Public Use
  Company Number: NL-CELLTRION INC.-2015NL011365

PATIENT

DRUGS (5)
  1. INFLIXIMAB [Suspect]
     Active Substance: INFLIXIMAB
     Indication: CROHN^S DISEASE
     Dosage: 4.8 MG/KG, EVERY 8 WEEKS
     Route: 042
     Dates: start: 20151123
  2. REMSIMA [Suspect]
     Active Substance: INFLIXIMAB
     Indication: CROHN^S DISEASE
     Dosage: 4.8 MG/KG, EVERY 8 WEEKS
     Route: 042
     Dates: start: 20151123, end: 20151123
  3. HYDROCORTISONE. [Concomitant]
     Active Substance: HYDROCORTISONE
     Indication: PROPHYLAXIS
     Dosage: UNK
     Dates: start: 20140514
  4. REMICADE [Suspect]
     Active Substance: INFLIXIMAB
     Indication: CROHN^S DISEASE
     Dosage: 4.8 MG/KG, EVERY 8 WEEKS
     Route: 042
     Dates: start: 20140130, end: 20151123
  5. MARVELON [Concomitant]
     Active Substance: DESOGESTREL\ETHINYL ESTRADIOL
     Indication: CONTRACEPTION
     Dosage: 30/150 MCG, DAILY
     Route: 048
     Dates: start: 19960101

REACTIONS (3)
  - Selective abortion [Unknown]
  - Incorrect dose administered [Unknown]
  - Exposure during pregnancy [Unknown]

NARRATIVE: CASE EVENT DATE: 20151123
